FAERS Safety Report 18406201 (Version 1)
Quarter: 2020Q4

REPORT INFORMATION
  Report Type: Spontaneous
  Country: HR (occurrence: HR)
  Receive Date: 20201020
  Receipt Date: 20201020
  Transmission Date: 20210114
  Serious: Yes (Hospitalization)
  Sender: FDA-Public Use
  Company Number: NVSC2020HR275580

PATIENT
  Sex: Male

DRUGS (7)
  1. PROMAZINE [Suspect]
     Active Substance: PROMAZINE
     Dosage: 100 MG (3X100 MG)
     Route: 065
  2. RISPOLEPT CONSTA [Suspect]
     Active Substance: RISPERIDONE
     Indication: PRODUCT USED FOR UNKNOWN INDICATION
     Dosage: 37.5 MG, BIW
     Route: 030
     Dates: start: 2011, end: 2012
  3. SODIUM VALPROATE [Suspect]
     Active Substance: VALPROATE SODIUM
     Indication: SCHIZOPHRENIA
     Dosage: 100 MG, UNKNOWN
     Route: 065
  4. DIAZEPAM. [Suspect]
     Active Substance: DIAZEPAM
     Indication: SCHIZOPHRENIA
     Dosage: UNK (5 TO 10 MG)
     Route: 065
  5. PROMAZINE [Suspect]
     Active Substance: PROMAZINE
     Indication: SCHIZOPHRENIA
     Dosage: 100 MG, UNKNOWN
     Route: 065
  6. RISPERIDONE. [Suspect]
     Active Substance: RISPERIDONE
     Indication: SCHIZOPHRENIA
     Dosage: 2 MG, UNKNOWN
     Route: 048
  7. RISPOLEPT CONSTA [Suspect]
     Active Substance: RISPERIDONE
     Dosage: 50 MG, BIW
     Route: 030
     Dates: start: 2012, end: 2013

REACTIONS (1)
  - Paranoia [Recovered/Resolved]

NARRATIVE: CASE EVENT DATE: 2011
